FAERS Safety Report 5506034-8 (Version None)
Quarter: 2007Q4

REPORT INFORMATION
  Report Type: 
  Country: None (occurrence: None)
  Receive Date: 20071101
  Receipt Date: 20071022
  Transmission Date: 20080405
  Serious: Yes (Hospitalization)
  Sender: FDA-Public Use
  Company Number: 6038922

PATIENT
  Age: 71 Year
  Sex: Female

DRUGS (10)
  1. BISOPROLOL FUMARATE [Suspect]
     Indication: VENTRICULAR TACHYCARDIA
     Dosage: 1, 25 MG (1, 25 MG, 1 IN 1 D) ORAL
     Route: 048
     Dates: start: 20070801
  2. CORDARONE [Suspect]
     Indication: LEFT VENTRICULAR DYSFUNCTION
     Dosage: 2 DOSAGE FORMS (2 DOSAGE FORMS, 1 IN 1 D) ORAL
     Route: 048
     Dates: start: 19950101
  3. LEVOTHYROXINE SODIUM [Concomitant]
  4. ZESTRIL [Concomitant]
  5. LASIX [Concomitant]
  6. ZOCOR [Concomitant]
  7. NEXIUM [Concomitant]
  8. LEXOMIL (BROMAZEPAM) [Concomitant]
  9. PREVISCAN (FLUINDIONE) [Concomitant]
  10. ZOLPIDEM TARTRATE [Concomitant]

REACTIONS (9)
  - BILIARY DILATATION [None]
  - CARDIAC MURMUR [None]
  - CHOLELITHIASIS [None]
  - CHOLESTASIS [None]
  - CONDITION AGGRAVATED [None]
  - CYTOLYTIC HEPATITIS [None]
  - LEFT VENTRICULAR DYSFUNCTION [None]
  - RENAL FAILURE CHRONIC [None]
  - VENTRICULAR TACHYCARDIA [None]
